FAERS Safety Report 8255339-9 (Version None)
Quarter: 2012Q2

REPORT INFORMATION
  Report Type: 
  Country: None (occurrence: None)
  Receive Date: 20120403
  Receipt Date: 20120323
  Transmission Date: 20120825
  Serious: Yes (Other)
  Sender: FDA-Public Use
  Company Number: FR-BRISTOL-MYERS SQUIBB COMPANY-16480998

PATIENT
  Age: 8 Month
  Sex: Female
  Weight: 1 kg

DRUGS (15)
  1. MUCOMYST [Suspect]
     Dosage: 3 SACHETS 3 TIMES A DAY
     Route: 064
  2. INSULATARD NPH HUMAN [Suspect]
     Dosage: 8IU MORNING + 4IU EVENING
     Route: 064
  3. URSOLVAN [Concomitant]
     Dosage: 1 DF= 2 TABS
  4. PRAVASTATIN [Suspect]
     Dosage: FORM: SCORED TABS
     Route: 064
  5. CREON [Concomitant]
     Dosage: 1 DF= 15 CAPS
  6. IMURAN [Suspect]
     Dosage: FILM COATED TABLET
     Route: 064
     Dates: end: 20110127
  7. TRANDATE [Suspect]
     Route: 064
  8. TOCO [Concomitant]
     Dosage: FORM: TOCO 500
  9. TACROLIMUS [Suspect]
     Dosage: INCREASED TO 12MG/DAY ON 20MAY11
     Route: 064
     Dates: end: 20110127
  10. AMLODIPINE BESYLATE [Suspect]
     Dosage: CAPSULE
     Route: 064
  11. PREDNISONE TAB [Suspect]
     Route: 064
     Dates: end: 20110127
  12. COLIMYCINE [Suspect]
     Dosage: 1 DF= 1 MIU. FORM: POWDER AND SOLVENT FOR NEBULIZER SOLUTION
     Route: 064
  13. ASPIRIN [Suspect]
     Dosage: FORM: POWDER FOR ORAL SOLUTION SACHET
     Route: 064
  14. ERGOCALCIFEROL [Concomitant]
  15. CALCIUM CARBONATE [Concomitant]

REACTIONS (1)
  - FOETAL GROWTH RESTRICTION [None]
